FAERS Safety Report 23287399 (Version 2)
Quarter: 2024Q1

REPORT INFORMATION
  Report Type: Report from Study
  Country: US (occurrence: US)
  Receive Date: 20231212
  Receipt Date: 20240119
  Transmission Date: 20240410
  Serious: Yes (Hospitalization)
  Sender: FDA-Public Use
  Company Number: US-ABBVIE-5531671

PATIENT
  Sex: Male

DRUGS (1)
  1. RINVOQ [Suspect]
     Active Substance: UPADACITINIB
     Indication: Crohn^s disease
     Route: 048
     Dates: start: 20230908

REACTIONS (7)
  - Infection [Unknown]
  - Pancreatitis [Recovering/Resolving]
  - Malaise [Recovering/Resolving]
  - Pancreatitis [Recovered/Resolved]
  - Inflammatory marker increased [Unknown]
  - Feeling abnormal [Unknown]
  - Diarrhoea [Recovering/Resolving]

NARRATIVE: CASE EVENT DATE: 20230101
